FAERS Safety Report 6964651-2 (Version None)
Quarter: 2010Q3

REPORT INFORMATION
  Report Type: 
  Country: None (occurrence: None)
  Receive Date: 20100903
  Receipt Date: 20100902
  Transmission Date: 20110219
  Serious: Yes (Death, Other)
  Sender: FDA-Public Use
  Company Number: US-ASTRAZENECA-2007UW18853

PATIENT
  Age: 19555 Day
  Sex: Female
  Weight: 99.8 kg

DRUGS (12)
  1. SEROQUEL [Suspect]
     Indication: SCHIZOPHRENIA
     Dosage: 25-900 MG
     Route: 048
     Dates: start: 20011226, end: 20060301
  2. SEROQUEL [Suspect]
     Indication: SLEEP DISORDER
     Dosage: 25-900 MG
     Route: 048
     Dates: start: 20011226, end: 20060301
  3. SEROQUEL [Suspect]
     Route: 048
     Dates: start: 20040615
  4. SEROQUEL [Suspect]
     Route: 048
     Dates: start: 20040615
  5. RISPERDAL [Concomitant]
     Indication: SCHIZOPHRENIA
     Dates: start: 20020101, end: 20030922
  6. CAPTOPRIL [Concomitant]
  7. PROTONIX [Concomitant]
  8. HYDROCHLOROTHIAZIDE [Concomitant]
  9. ZOLOFT [Concomitant]
  10. COUMADIN [Concomitant]
  11. PREDNISONE [Concomitant]
  12. REGULAR INSULIN [Concomitant]

REACTIONS (7)
  - DEATH [None]
  - DIABETES MELLITUS [None]
  - DIABETES MELLITUS INADEQUATE CONTROL [None]
  - DIABETIC NEPHROPATHY [None]
  - DIABETIC NEUROPATHY [None]
  - HYPOGLYCAEMIA [None]
  - TYPE 2 DIABETES MELLITUS [None]
